FAERS Safety Report 6294896-9 (Version None)
Quarter: 2009Q3

REPORT INFORMATION
  Report Type: 
  Country: None (occurrence: None)
  Receive Date: 20090731
  Receipt Date: 20090731
  Transmission Date: 20100115
  Serious: No
  Sender: FDA-Public Use
  Company Number: None

PATIENT
  Age: 32 Year
  Sex: Female
  Weight: 63.5036 kg

DRUGS (1)
  1. CHANTIX [Suspect]

REACTIONS (7)
  - AGGRESSION [None]
  - AMNESIA [None]
  - DEPRESSION [None]
  - FATIGUE [None]
  - NIGHTMARE [None]
  - SUICIDAL IDEATION [None]
  - WEIGHT INCREASED [None]
